FAERS Safety Report 20561780 (Version 1)
Quarter: 2022Q1

REPORT INFORMATION
  Report Type: Spontaneous
  Country: AR (occurrence: AR)
  Receive Date: 20220307
  Receipt Date: 20220307
  Transmission Date: 20220423
  Serious: Yes (Hospitalization, Other)
  Sender: FDA-Public Use
  Company Number: AR-MYLANLABS-2022M1009783

PATIENT
  Age: 26 Year
  Sex: Male

DRUGS (2)
  1. CLOZAPINE [Suspect]
     Active Substance: CLOZAPINE
     Indication: Schizophrenia
     Dosage: 300 MILLIGRAM, QD
     Dates: start: 20211109, end: 20220302
  2. LORAZEPAM [Concomitant]
     Active Substance: LORAZEPAM
     Dosage: UNK

REACTIONS (10)
  - Pyrexia [Unknown]
  - Leukopenia [Not Recovered/Not Resolved]
  - Neutropenia [Not Recovered/Not Resolved]
  - Haemoglobin decreased [Recovering/Resolving]
  - Haematocrit decreased [Recovered/Resolved]
  - Red blood cell count decreased [Recovering/Resolving]
  - Mean cell haemoglobin concentration decreased [Recovered/Resolved]
  - Monocyte count increased [Recovered/Resolved]
  - Mean cell volume decreased [Recovered/Resolved]
  - Lymphocyte count increased [Not Recovered/Not Resolved]

NARRATIVE: CASE EVENT DATE: 20220128
